FAERS Safety Report 9013453 (Version 1)
Quarter: 2013Q1

REPORT INFORMATION
  Report Type: Spontaneous
  Country: US (occurrence: US)
  Receive Date: 20130114
  Receipt Date: 20130114
  Transmission Date: 20140127
  Serious: Yes (Hospitalization, Other)
  Sender: FDA-Public Use
  Company Number: US-009507513-1301USA001451

PATIENT
  Age: 57 Year
  Sex: Female

DRUGS (6)
  1. SINGULAIR [Suspect]
     Indication: ANXIETY
     Route: 048
  2. FLUTICASONE PROPIONATE [Suspect]
     Indication: ASTHMA
     Dosage: 2 DF, UNK
     Route: 050
  3. IPRATROPIUM BROMIDE [Suspect]
     Indication: ILL-DEFINED DISORDER
  4. TERBUTALINE SULFATE [Suspect]
     Dosage: 2 DF, UNK
     Route: 050
  5. ACETAMINOPHEN [Suspect]
     Route: 048
  6. ATARAX (ALPRAZOLAM) [Suspect]
     Dosage: 50 MG, UNK
     Route: 048

REACTIONS (2)
  - General physical health deterioration [Unknown]
  - Allergic granulomatous angiitis [Unknown]
